FAERS Safety Report 19033899 (Version 1)
Quarter: 2021Q1

REPORT INFORMATION
  Report Type: Spontaneous
  Country: IE (occurrence: IE)
  Receive Date: 20210320
  Receipt Date: 20210320
  Transmission Date: 20210420
  Serious: Yes (Life-Threatening, Hospitalization, Disabling)
  Sender: FDA-Public Use
  Company Number: IE-ORGANON-O2103IRL002174

PATIENT
  Age: 21 Year
  Sex: Female
  Weight: 69.92 kg

DRUGS (7)
  1. OLANZAPINE. [Suspect]
     Active Substance: OLANZAPINE
     Dosage: REPORTED TO HAVE BEEN ADMINISTERED IN ORAL AND INJECTION FORM
     Dates: start: 19890801, end: 20210201
  2. PANTIUM [PANTOPRAZOLE SODIUM SESQUIHYDRATE] [Concomitant]
     Dosage: UNK
  3. MIRTAZAPINE. [Suspect]
     Active Substance: MIRTAZAPINE
     Dosage: REPORTED TO HAVE BEEN ADMINISTERED IN ORAL AND INJECTION FORM
     Dates: start: 19890801, end: 20210201
  4. KLACID [CLARITHROMYCIN] [Suspect]
     Active Substance: CLARITHROMYCIN
     Dosage: REPORTED TO HAVE BEEN ADMINISTERED IN ORAL AND INJECTION FORM
     Dates: start: 19890801, end: 20210201
  5. SOLIAN [Concomitant]
     Active Substance: AMISULPRIDE
     Dosage: UNK
  6. LERCANIDIPINE [Concomitant]
     Active Substance: LERCANIDIPINE
     Dosage: UNK
  7. EFEXOR XL [Concomitant]
     Active Substance: VENLAFAXINE HYDROCHLORIDE
     Dosage: UNK (FORMULATION REPORTED AS ^PROLONGED?RELEASE CAPSULES^))

REACTIONS (6)
  - Hostility [Unknown]
  - Dyspnoea [Unknown]
  - Social avoidant behaviour [Unknown]
  - Diarrhoea [Unknown]
  - Hyperhidrosis [Unknown]
  - Vomiting [Unknown]
